FAERS Safety Report 7903653 (Version 6)
Quarter: 2012Q4

REPORT INFORMATION
  Report Type: Report from Study
  Country: GB (occurrence: GB)
  Receive Date: 20110419
  Receipt Date: 20121030
  Transmission Date: 20130627
  Serious: Yes (Hospitalization, Disabling)
  Sender: FDA-Public Use
  Company Number: GB-AMGEN-GBRCT2011020079

PATIENT
  Age: 29 Year
  Sex: Male
  Weight: 79.7 kg

DRUGS (4)
  1. ETANERCEPT [Suspect]
     Indication: PSORIASIS
     Dosage: 50 mg, qwk
     Dates: start: 20100804, end: 20110202
  2. ETANERCEPT [Suspect]
     Dosage: 50 mg, qwk
     Dates: start: 20110521
  3. METHOTREXATE [Concomitant]
     Dosage: UNK
     Dates: start: 20080122
  4. FOLIC ACID [Concomitant]
     Dosage: UNK
     Dates: start: 20080122

REACTIONS (8)
  - Excoriation [Unknown]
  - Inguinal mass [Unknown]
  - Rash pruritic [Unknown]
  - Pain in extremity [Unknown]
  - Groin pain [Unknown]
  - Lymphadenopathy [Unknown]
  - Postoperative wound infection [Unknown]
  - Cellulitis [Recovered/Resolved]
